FAERS Safety Report 13368611 (Version 1)
Quarter: 2017Q1

REPORT INFORMATION
  Report Type: Spontaneous
  Country: US (occurrence: US)
  Receive Date: 20170324
  Receipt Date: 20170324
  Transmission Date: 20170429
  Serious: Yes (Other)
  Sender: FDA-Public Use
  Company Number: US-PFIZER INC-2017122704

PATIENT
  Sex: Female

DRUGS (1)
  1. ATORVASTATIN CALCIUM. [Suspect]
     Active Substance: ATORVASTATIN CALCIUM

REACTIONS (4)
  - Blood pressure abnormal [Unknown]
  - Drug hypersensitivity [Unknown]
  - Malaise [Unknown]
  - Reaction to drug excipients [Unknown]
